FAERS Safety Report 15308343 (Version 5)
Quarter: 2020Q1

REPORT INFORMATION
  Report Type: Report from Study
  Country: US (occurrence: US)
  Receive Date: 20180822
  Receipt Date: 20200116
  Transmission Date: 20200409
  Serious: Yes (Death, Hospitalization)
  Sender: FDA-Public Use
  Company Number: US-ACTELION-A-NJ2017-161273

PATIENT
  Age: 65 Year
  Sex: Female
  Weight: 52.15 kg

DRUGS (3)
  1. UPTRAVI [Suspect]
     Active Substance: SELEXIPAG
     Indication: PULMONARY ARTERIAL HYPERTENSION
     Dosage: 1600 MCG, BID
     Route: 048
     Dates: start: 20160229
  2. OPSUMIT [Suspect]
     Active Substance: MACITENTAN
     Indication: PULMONARY ARTERIAL HYPERTENSION
     Dosage: 10 MG, QD
     Route: 048
     Dates: end: 20191228
  3. ADEMPAS [Concomitant]
     Active Substance: RIOCIGUAT

REACTIONS (13)
  - Cough [Unknown]
  - Pneumonia [Unknown]
  - Chest pain [Unknown]
  - Dyspnoea [Unknown]
  - Weight decreased [Unknown]
  - Fibrosis [Unknown]
  - Pulmonary fibrosis [Fatal]
  - Hospice care [Unknown]
  - Palpitations [Unknown]
  - Chest discomfort [Unknown]
  - Abdominal pain upper [Unknown]
  - Gallbladder disorder [Unknown]
  - Fatigue [Unknown]

NARRATIVE: CASE EVENT DATE: 20171005
